FAERS Safety Report 7088146-3 (Version None)
Quarter: 2010Q4

REPORT INFORMATION
  Report Type: 
  Country: None (occurrence: None)
  Receive Date: 20101108
  Receipt Date: 20101028
  Transmission Date: 20110411
  Serious: Yes (Other)
  Sender: FDA-Public Use
  Company Number: US-SANOFI-AVENTIS-2010SA066125

PATIENT
  Sex: Female

DRUGS (3)
  1. OXALIPLATIN [Suspect]
  2. TRASTUZUMAB [Suspect]
  3. TRASTUZUMAB [Suspect]

REACTIONS (7)
  - ARTHRALGIA [None]
  - CARDIAC FAILURE CONGESTIVE [None]
  - DIARRHOEA [None]
  - FATIGUE [None]
  - MYALGIA [None]
  - NAUSEA [None]
  - VOMITING [None]
